FAERS Safety Report 9333684 (Version 1)
Quarter: 2013Q2

REPORT INFORMATION
  Report Type: Spontaneous
  Country: US (occurrence: US)
  Receive Date: 20130606
  Receipt Date: 20130606
  Transmission Date: 20140414
  Serious: No
  Sender: FDA-Public Use
  Company Number: US-AMGEN-USASP2012080568

PATIENT
  Age: 74 Year
  Sex: Female

DRUGS (6)
  1. PROLIA [Suspect]
     Indication: OSTEOPOROSIS POSTMENOPAUSAL
     Dosage: UNK
     Dates: start: 201206
  2. SIMVASTATIN [Concomitant]
     Dosage: 10 MG, UNK
  3. VITAMIN C                          /00008001/ [Concomitant]
     Dosage: 500 MG, QD
  4. VITAMIN D3 [Concomitant]
     Dosage: 1000 IU, BID
  5. ASPIRIN [Concomitant]
     Dosage: UNK UNK, PRN
  6. CALTRATE WITH VITAMIN D [Concomitant]
     Dosage: 1200 MG, QD

REACTIONS (3)
  - Tooth disorder [Not Recovered/Not Resolved]
  - Gingival recession [Not Recovered/Not Resolved]
  - Gingival inflammation [Not Recovered/Not Resolved]
